FAERS Safety Report 11410147 (Version 1)
Quarter: 2015Q3

REPORT INFORMATION
  Report Type: Spontaneous
  Country: US (occurrence: None)
  Receive Date: 20150819
  Receipt Date: 20150819
  Transmission Date: 20151125
  Serious: Yes (Other)
  Sender: FDA-Public Use
  Company Number: 2014-18099

PATIENT
  Sex: Male

DRUGS (1)
  1. MIRTAZAPINE (WATSON LABORATORIES) (MIRTAZAPINE) TABLET [Suspect]
     Active Substance: MIRTAZAPINE
     Indication: PRODUCT USED FOR UNKNOWN INDICATION

REACTIONS (7)
  - Pyrexia [None]
  - Tremor [None]
  - Feeling hot [None]
  - Drug withdrawal syndrome [None]
  - Hypertension [None]
  - Heart rate increased [None]
  - Feeling cold [None]
